FAERS Safety Report 14019559 (Version 2)
Quarter: 2017Q4

REPORT INFORMATION
  Report Type: Spontaneous
  Country: FR (occurrence: FR)
  Receive Date: 20170928
  Receipt Date: 20171030
  Transmission Date: 20180321
  Serious: Yes (Other)
  Sender: FDA-Public Use
  Company Number: FR-009507513-1709FRA012825

PATIENT
  Age: 82 Year
  Sex: Female

DRUGS (9)
  1. KEYTRUDA [Suspect]
     Active Substance: PEMBROLIZUMAB
     Indication: METASTATIC MALIGNANT MELANOMA
     Dosage: 2 MG/KG, Q3W (7.4381 MG (156.2 MG EVERY THREE WEEKS))
     Route: 042
     Dates: start: 20170419
  2. KEYTRUDA [Suspect]
     Active Substance: PEMBROLIZUMAB
     Dosage: 2 MG/KG, Q3W (7.4381 MG (156.2 MG EVERY THREE WEEKS))
     Route: 042
     Dates: start: 20170531
  3. KEYTRUDA [Suspect]
     Active Substance: PEMBROLIZUMAB
     Dosage: 2 MG/KG, Q3W (7.4381 MG (156.2 MG EVERY THREE WEEKS))
     Route: 042
     Dates: start: 20170621
  4. KEYTRUDA [Suspect]
     Active Substance: PEMBROLIZUMAB
     Dosage: 2 MG/KG, Q3W (7.4381 MG (156.2 MG EVERY THREE WEEKS))
     Route: 042
     Dates: start: 20170830
  5. KEYTRUDA [Suspect]
     Active Substance: PEMBROLIZUMAB
     Dosage: 2 MG/KG, Q3W (7.4381 MG (156.2 MG EVERY THREE WEEKS))
     Route: 042
     Dates: start: 20171009
  6. KEYTRUDA [Suspect]
     Active Substance: PEMBROLIZUMAB
     Dosage: 2 MG/KG, Q3W (7.4381 MG (156.2 MG EVERY THREE WEEKS))
     Route: 042
     Dates: start: 20170811
  7. KEYTRUDA [Suspect]
     Active Substance: PEMBROLIZUMAB
     Dosage: 2 MG/KG, Q3W (7.4381 MG (156.2 MG EVERY THREE WEEKS))
     Route: 042
     Dates: start: 20170922
  8. KEYTRUDA [Suspect]
     Active Substance: PEMBROLIZUMAB
     Dosage: 2 MG/KG, Q3W (7.4381 MG (156.2 MG EVERY THREE WEEKS))
     Route: 042
     Dates: start: 20170510
  9. KEYTRUDA [Suspect]
     Active Substance: PEMBROLIZUMAB
     Dosage: 2 MG/KG, Q3W (7.4381 MG (156.2 MG EVERY THREE WEEKS))
     Route: 042
     Dates: start: 20170719

REACTIONS (1)
  - Polymyalgia rheumatica [Recovering/Resolving]

NARRATIVE: CASE EVENT DATE: 20170621
